FAERS Safety Report 17260520 (Version 1)
Quarter: 2020Q1

REPORT INFORMATION
  Report Type: Spontaneous
  Country: US (occurrence: US)
  Receive Date: 20200113
  Receipt Date: 20200113
  Transmission Date: 20200409
  Serious: Yes (Other)
  Sender: FDA-Public Use
  Company Number: US-BEH-2020111395

PATIENT
  Age: 13 Year
  Sex: Female

DRUGS (4)
  1. BERINERT [Suspect]
     Active Substance: HUMAN C1-ESTERASE INHIBITOR
     Indication: ANGIOEDEMA
     Dosage: 1000 INTERNATIONAL UNIT, QD
     Route: 042
     Dates: start: 20170826
  2. BERINERT [Suspect]
     Active Substance: HUMAN C1-ESTERASE INHIBITOR
     Indication: PROPHYLAXIS
  3. BERINERT [Suspect]
     Active Substance: HUMAN C1-ESTERASE INHIBITOR
     Indication: PROPHYLAXIS
  4. BERINERT [Suspect]
     Active Substance: HUMAN C1-ESTERASE INHIBITOR
     Indication: ANGIOEDEMA
     Dosage: 1000 INTERNATIONAL UNIT, QD
     Route: 042
     Dates: start: 20170826

REACTIONS (4)
  - Seizure [Unknown]
  - Product use in unapproved indication [Unknown]
  - Unevaluable event [Unknown]
  - No adverse event [Unknown]

NARRATIVE: CASE EVENT DATE: 20191223
